FAERS Safety Report 8579039-0 (Version None)
Quarter: 2012Q3

REPORT INFORMATION
  Report Type: 
  Country: None (occurrence: None)
  Receive Date: 20120808
  Receipt Date: 20111012
  Transmission Date: 20120928
  Serious: Yes (Hospitalization)
  Sender: FDA-Public Use
  Company Number: CH-ROCHE-1000800

PATIENT
  Age: 47 Year
  Sex: Male
  Weight: 73 kg

DRUGS (7)
  1. ZELBORAF [Suspect]
     Indication: MALIGNANT MELANOMA
     Dosage: DOSE FORM: REPORTED AS 240 MG, LAST DOSE: 15 SEPTEMBER 2011
     Route: 048
     Dates: start: 20110820
  2. TORSEMIDE [Concomitant]
     Dates: start: 20110901, end: 20110919
  3. NEXIUM [Concomitant]
     Dates: start: 20110819
  4. FRAXIFORTE [Concomitant]
     Dates: start: 20110901
  5. CALCIUM CARBONATE [Concomitant]
     Dates: start: 20110819
  6. FOLIC ACID [Concomitant]
     Dates: start: 20110905
  7. DORMICUM (SWITZERLAND) [Concomitant]
     Dates: start: 20110819, end: 20110919

REACTIONS (1)
  - PLEURAL EFFUSION [None]
